FAERS Safety Report 25741369 (Version 5)
Quarter: 2025Q4

REPORT INFORMATION
  Report Type: Report from Study
  Country: US (occurrence: US)
  Receive Date: 20250829
  Receipt Date: 20251031
  Transmission Date: 20260117
  Serious: Yes (Hospitalization, Other)
  Sender: MALLINCKRODT
  Company Number: US-MALLINCKRODT-MNK202505167

PATIENT
  Age: 59 Year
  Sex: Female
  Weight: 112 kg

DRUGS (3)
  1. CORTICOTROPIN [Suspect]
     Active Substance: CORTICOTROPIN
     Indication: Systemic lupus erythematosus
     Dosage: 80 UNITS
     Route: 058
     Dates: start: 20250915
  2. PAXLOVID [Suspect]
     Active Substance: NIRMATRELVIR\RITONAVIR
     Indication: Product used for unknown indication
     Dosage: UNKNOWN
  3. TRULICITY [Concomitant]
     Active Substance: DULAGLUTIDE
     Dosage: UNKNOWN

REACTIONS (11)
  - COVID-19 [Unknown]
  - Pericardial effusion [Unknown]
  - Tremor [Unknown]
  - Pneumonia [Not Recovered/Not Resolved]
  - Flushing [Recovered/Resolved]
  - Throat tightness [Unknown]
  - Dehydration [Unknown]
  - Dysphemia [Unknown]
  - Dysarthria [Unknown]
  - Fatigue [Unknown]
  - Drug ineffective [Unknown]

NARRATIVE: CASE EVENT DATE: 20250916
